FAERS Safety Report 5547292-3 (Version None)
Quarter: 2007Q4

REPORT INFORMATION
  Report Type: 
  Country: None (occurrence: None)
  Receive Date: 20071211
  Receipt Date: 20070221
  Transmission Date: 20080405
  Serious: No
  Sender: FDA-Public Use
  Company Number: US-AMGEN-KDL211372

PATIENT
  Sex: Female

DRUGS (11)
  1. ENBREL [Suspect]
     Indication: ARTHRITIS
     Route: 058
     Dates: start: 20070123
  2. FOLIC ACID [Concomitant]
     Dates: start: 20060623
  3. ALLEGRA [Concomitant]
     Dates: start: 20060501
  4. LORTAB [Concomitant]
     Dates: start: 20050401
  5. NEXIUM [Concomitant]
     Dates: start: 20050701
  6. SINGULAIR [Concomitant]
     Dates: start: 20041001
  7. ESTRASE [Concomitant]
     Dates: start: 19971101
  8. FOSAMAX [Concomitant]
     Dates: start: 20050701
  9. NEURONTIN [Concomitant]
     Dates: start: 20051201
  10. TRAMADOL HCL [Concomitant]
     Dates: start: 20061207
  11. FISH OIL [Concomitant]
     Dates: start: 20050401

REACTIONS (1)
  - INJECTION SITE REACTION [None]
